FAERS Safety Report 8047240 (Version 4)
Quarter: 2012Q4

REPORT INFORMATION
  Report Type: 
  Country: CA (occurrence: CA)
  Receive Date: 20110721
  Receipt Date: 20120907
  Transmission Date: 20130627
  Serious: Yes (Other)
  Sender: FDA-Public Use
  Company Number: PHHY2011CA62299

PATIENT
  Age: 70 Year
  Sex: Female

DRUGS (14)
  1. ACLASTA [Suspect]
     Indication: OSTEOPOROSIS
     Route: 042
     Dates: start: 20090616
  2. ACLASTA [Suspect]
     Route: 042
     Dates: start: 20100817
  3. ACLASTA [Suspect]
     Route: 042
     Dates: start: 20110823
  4. HYDROCHLOROTHIAZIDE [Concomitant]
     Dosage: 125 mg, QD
  5. PANTOPRAZOLE [Concomitant]
     Dosage: 40 mg, QD
  6. THYROXIN [Concomitant]
     Dosage: 0.125 mg, QD
  7. NIFEDIPINE [Concomitant]
     Dosage: 10 mg, BID
  8. ACETYLSALICYLIC ACID [Concomitant]
     Dosage: 325 mg, QD
  9. DICLOFENAC [Concomitant]
     Dosage: 50 mg, UNK (PRN)
  10. ADVAIR [Concomitant]
     Dosage: 500 UKN, BID
  11. VENTOLIN                           /00139501/ [Concomitant]
     Dosage: 100 ug, QID
  12. SPIRIVA ^BOEHRINGER INGELHEIM^ [Concomitant]
     Dosage: 18 ug, QD
  13. CALCIUM [Concomitant]
     Dosage: 1200 mg, QD
  14. VITAMIN D3 [Concomitant]
     Dosage: 3000 IU, UNK

REACTIONS (1)
  - Blood 25-hydroxycholecalciferol decreased [Not Recovered/Not Resolved]
